FAERS Safety Report 13097303 (Version 6)
Quarter: 2017Q2

REPORT INFORMATION
  Report Type: Report from Study
  Country: FR (occurrence: FR)
  Receive Date: 20170109
  Receipt Date: 20170601
  Transmission Date: 20170830
  Serious: Yes (Hospitalization)
  Sender: FDA-Public Use
  Company Number: FR-ROCHE-1874284

PATIENT
  Age: 64 Year
  Sex: Male
  Weight: 68 kg

DRUGS (23)
  1. FUNGIZONE [Concomitant]
     Active Substance: AMPHOTERICIN B
     Indication: APHTHOUS ULCER
     Route: 065
     Dates: start: 20161117, end: 20161126
  2. METHOTREXATE. [Concomitant]
     Active Substance: METHOTREXATE
     Indication: PROPHYLAXIS
     Route: 037
     Dates: start: 20161201, end: 20161201
  3. NEULASTA [Concomitant]
     Active Substance: PEGFILGRASTIM
     Route: 065
     Dates: start: 20161202, end: 20161202
  4. BACTRIM [Concomitant]
     Active Substance: SULFAMETHOXAZOLE\TRIMETHOPRIM
     Indication: INFECTION
     Route: 065
     Dates: start: 20161109
  5. PREDNISONE. [Suspect]
     Active Substance: PREDNISONE
     Indication: B-CELL LYMPHOMA
     Dosage: MOST RECENT DOSE 26/DEC/2016
     Route: 048
     Dates: start: 20160922
  6. COLCHIMAX (FRANCE) [Concomitant]
     Active Substance: COLCHICINE\OPIUM, POWDERED\TIEMONIUM
     Indication: GOUT
     Route: 065
     Dates: start: 20161202, end: 20161206
  7. VINCRISTINE [Suspect]
     Active Substance: VINCRISTINE
     Indication: B-CELL LYMPHOMA
     Dosage: MOST RECENT DOSE (2 MG): 22/DEC/2016 AT 16:25
     Route: 050
     Dates: start: 20160922
  8. ARANESP [Concomitant]
     Active Substance: DARBEPOETIN ALFA
     Indication: ANAEMIA
     Route: 065
     Dates: start: 20161011
  9. VALACICLOVIR [Concomitant]
     Active Substance: VALACYCLOVIR HYDROCHLORIDE
     Indication: INFECTION
     Route: 065
     Dates: start: 20161109, end: 20170124
  10. CYTARABINE. [Concomitant]
     Active Substance: CYTARABINE
     Indication: PROPHYLAXIS
     Route: 037
     Dates: start: 20161201, end: 20161201
  11. XYZALL [Concomitant]
     Active Substance: LEVOCETIRIZINE DIHYDROCHLORIDE
     Indication: PREMEDICATION
     Route: 065
     Dates: start: 20160922
  12. PANTOPRAZOLE [Concomitant]
     Active Substance: PANTOPRAZOLE
     Indication: GASTRITIS
     Route: 065
     Dates: start: 20161004
  13. NEULASTA [Concomitant]
     Active Substance: PEGFILGRASTIM
     Indication: NEUTROPENIA
     Route: 065
     Dates: start: 20161109
  14. METHYLPREDNISOLONE. [Concomitant]
     Active Substance: METHYLPREDNISOLONE
     Indication: PROPHYLAXIS
     Route: 037
     Dates: start: 20161201, end: 20161201
  15. RITUXIMAB [Suspect]
     Active Substance: RITUXIMAB
     Indication: B-CELL LYMPHOMA
     Dosage: MOST RECENT DOSE (700 MG): 22/DEC/2016 AT 1315?INITAL DOSE: AS PER PROTOCOL
     Route: 042
     Dates: start: 20160922
  16. CYCLOPHOSPHAMIDE. [Suspect]
     Active Substance: CYCLOPHOSPHAMIDE
     Indication: B-CELL LYMPHOMA
     Dosage: MOST RECENT DOSE (1400 MG): 22/DEC/2016 AT 1705?(PER PROTOCOL)
     Route: 042
     Dates: start: 20160922
  17. TRIATEC (FRANCE) [Concomitant]
     Active Substance: RAMIPRIL
     Indication: HYPERTENSION
     Route: 065
     Dates: start: 2006
  18. DAFALGAN [Concomitant]
     Active Substance: ACETAMINOPHEN
     Indication: PREMEDICATION
     Route: 065
     Dates: start: 20160922
  19. PANTOPRAZOLE [Concomitant]
     Active Substance: PANTOPRAZOLE
     Route: 065
     Dates: start: 20160902
  20. VENETOCLAX [Suspect]
     Active Substance: VENETOCLAX
     Indication: B-CELL LYMPHOMA
     Dosage: MOST RECENT DOSE: 26/DEC/2016?(PER PROTOCOL)
     Route: 048
     Dates: start: 20160925
  21. DOXORUBICIN [Suspect]
     Active Substance: DOXORUBICIN
     Indication: B-CELL LYMPHOMA
     Dosage: MOST RECENT DOSE (90 MG): 22/DEC/2016 AT 1650
     Route: 042
     Dates: start: 20160922
  22. LODOZ [Concomitant]
     Active Substance: BISOPROLOL FUMARATE\HYDROCHLOROTHIAZIDE
     Indication: HYPERTENSION
     Route: 065
     Dates: start: 2016
  23. NEULASTA [Concomitant]
     Active Substance: PEGFILGRASTIM
     Route: 065
     Dates: start: 20161223, end: 20161223

REACTIONS (2)
  - Sepsis [Recovered/Resolved]
  - Rectal haemorrhage [Recovered/Resolved]

NARRATIVE: CASE EVENT DATE: 20161226
